FAERS Safety Report 8133774-7 (Version None)
Quarter: 2012Q1

REPORT INFORMATION
  Report Type: 
  Country: None (occurrence: None)
  Receive Date: 20120213
  Receipt Date: 20120213
  Transmission Date: 20120608
  Serious: Yes (Hospitalization, Disabling)
  Sender: FDA-Public Use
  Company Number: None

PATIENT
  Age: 35 Year
  Sex: Female
  Weight: 110.22 kg

DRUGS (1)
  1. NABUMETONE [Suspect]
     Indication: ARTHRALGIA
     Dosage: 750 MG
     Route: 048

REACTIONS (3)
  - GASTROOESOPHAGEAL REFLUX DISEASE [None]
  - RENAL FAILURE ACUTE [None]
  - ABDOMINAL DISCOMFORT [None]
